FAERS Safety Report 7736115-X (Version None)
Quarter: 2011Q3

REPORT INFORMATION
  Report Type: 
  Country: None (occurrence: None)
  Receive Date: 20110908
  Receipt Date: 20110826
  Transmission Date: 20111222
  Serious: Yes (Death)
  Sender: FDA-Public Use
  Company Number: BE-JNJFOC-20110900940

PATIENT
  Age: 55 Year
  Sex: Male

DRUGS (20)
  1. DOXORUBICIN HYDROCHLORIDE [Suspect]
     Route: 042
  2. VINCRISTINE [Suspect]
     Route: 065
  3. DEXAMETHASONE [Suspect]
     Route: 065
  4. DOXORUBICIN HYDROCHLORIDE [Suspect]
     Indication: MULTIPLE MYELOMA
     Route: 042
  5. DOXORUBICIN HYDROCHLORIDE [Suspect]
     Route: 042
  6. VINCRISTINE [Suspect]
     Route: 065
  7. DEXAMETHASONE [Suspect]
     Route: 065
  8. DEXAMETHASONE [Suspect]
     Route: 065
  9. VINCRISTINE [Suspect]
     Route: 065
  10. DOXORUBICIN HYDROCHLORIDE [Suspect]
     Route: 042
  11. VINCRISTINE [Suspect]
     Route: 065
  12. VINCRISTINE [Suspect]
     Route: 065
  13. DEXAMETHASONE [Suspect]
     Route: 065
  14. DOXORUBICIN HYDROCHLORIDE [Suspect]
     Route: 042
  15. DOXORUBICIN HYDROCHLORIDE [Suspect]
     Route: 042
  16. VINCRISTINE [Suspect]
     Indication: MULTIPLE MYELOMA
     Route: 065
  17. DEXAMETHASONE [Suspect]
     Indication: MULTIPLE MYELOMA
     Route: 065
  18. BORTEZOMIB [Suspect]
     Indication: MULTIPLE MYELOMA
     Route: 065
  19. DEXAMETHASONE [Suspect]
     Route: 065
  20. DEXAMETHASONE [Suspect]
     Route: 065

REACTIONS (3)
  - DIPLOPIA [None]
  - MULTIPLE MYELOMA [None]
  - PARAPARESIS [None]
